FAERS Safety Report 20377000 (Version 4)
Quarter: 2022Q1

REPORT INFORMATION
  Report Type: Spontaneous
  Country: IT (occurrence: IT)
  Receive Date: 20220125
  Receipt Date: 20220210
  Transmission Date: 20220423
  Serious: Yes (Death, Hospitalization, Other)
  Sender: FDA-Public Use
  Company Number: IT-Accord-246745

PATIENT
  Age: 52 Year
  Sex: Female

DRUGS (16)
  1. AZACITIDINE [Suspect]
     Active Substance: AZACITIDINE
     Indication: Product used for unknown indication
     Dosage: 75 MILLIGRAM
     Route: 041
     Dates: start: 2020
  2. AZACITIDINE [Suspect]
     Active Substance: AZACITIDINE
     Indication: Off label use
  3. ENASIDENIB [Suspect]
     Active Substance: ENASIDENIB
     Indication: Product used for unknown indication
     Route: 065
     Dates: start: 202001
  4. FLUDARABINE PHOSPHATE [Suspect]
     Active Substance: FLUDARABINE PHOSPHATE
     Indication: Product used for unknown indication
     Route: 065
     Dates: start: 201910
  5. FLUDARABINE PHOSPHATE [Suspect]
     Active Substance: FLUDARABINE PHOSPHATE
     Indication: Off label use
  6. CYTARABINE [Suspect]
     Active Substance: CYTARABINE
     Indication: Acute myeloid leukaemia
     Route: 065
     Dates: start: 201910
  7. IDARUBICIN [Suspect]
     Active Substance: IDARUBICIN
     Indication: Acute myeloid leukaemia
     Route: 065
     Dates: start: 201910
  8. AMPHOTERICIN B [Concomitant]
     Active Substance: AMPHOTERICIN B
     Indication: Product used for unknown indication
     Dosage: 3 MILLIGRAM/KILOGRAM
     Route: 065
     Dates: start: 2020
  9. CEFTAZIDIME [Concomitant]
     Active Substance: CEFTAZIDIME
     Indication: Product used for unknown indication
     Dosage: 7.5 MILLIGRAM
     Route: 065
     Dates: start: 2020
  10. VORICONAZOLE [Concomitant]
     Active Substance: VORICONAZOLE
     Indication: Product used for unknown indication
     Dosage: 6 MG/KG EVERY 12 H ON DAY?1, THEN 4 MG/KG TWICE A DAY
     Route: 065
     Dates: start: 2020
  11. CASPOFUNGIN [Concomitant]
     Active Substance: CASPOFUNGIN
     Indication: Product used for unknown indication
     Route: 065
     Dates: start: 2020
  12. TAZOBACTAM [Concomitant]
     Active Substance: TAZOBACTAM
     Indication: Product used for unknown indication
     Route: 065
     Dates: start: 2020
  13. COLISTIN [Concomitant]
     Active Substance: COLISTIN
     Indication: Product used for unknown indication
     Route: 065
     Dates: start: 2020
  14. AVIBACTAM [Concomitant]
     Active Substance: AVIBACTAM
     Indication: Product used for unknown indication
     Dosage: 2.5 MILLIGRAM
     Route: 065
     Dates: start: 2020
  15. CEFTOLOZANE [Concomitant]
     Active Substance: CEFTOLOZANE
     Indication: Product used for unknown indication
     Route: 065
     Dates: start: 2020
  16. CLINDAMYCIN [Concomitant]
     Active Substance: CLINDAMYCIN
     Indication: Product used for unknown indication
     Dosage: 1200 MILLIGRAM
     Route: 065
     Dates: start: 2020

REACTIONS (9)
  - Multiple organ dysfunction syndrome [Fatal]
  - Septic shock [Fatal]
  - Staphylococcal infection [Unknown]
  - Sphingomonas paucimobilis infection [Unknown]
  - Geotrichum infection [Unknown]
  - Neutropenia [Unknown]
  - Pseudomonas infection [Unknown]
  - Thrombocytopenia [Unknown]
  - Enterococcal infection [Unknown]

NARRATIVE: CASE EVENT DATE: 20190101
